FAERS Safety Report 9525239 (Version 3)
Quarter: 2015Q1

REPORT INFORMATION
  Report Type: Report from Study
  Country: CL (occurrence: CL)
  Receive Date: 20130916
  Receipt Date: 20150122
  Transmission Date: 20150721
  Serious: Yes (Other)
  Sender: FDA-Public Use
  Company Number: CL-ROCHE-1220849

PATIENT
  Age: 70 Year
  Sex: Female

DRUGS (1)
  1. XELODA [Suspect]
     Active Substance: CAPECITABINE
     Indication: BREAST CANCER
     Dosage: 14 DAYS PER CYCLE
     Route: 048
     Dates: start: 20130409

REACTIONS (5)
  - Breast mass [Unknown]
  - Nausea [Not Recovered/Not Resolved]
  - Disease progression [Unknown]
  - Decreased appetite [Not Recovered/Not Resolved]
  - Neck mass [Unknown]

NARRATIVE: CASE EVENT DATE: 20130409
